FAERS Safety Report 9004786 (Version 1)
Quarter: 2013Q1

REPORT INFORMATION
  Report Type: Spontaneous
  Country: US (occurrence: None)
  Receive Date: 20130107
  Receipt Date: 20130107
  Transmission Date: 20140127
  Serious: Yes (Hospitalization)
  Sender: FDA-Public Use
  Company Number: None

PATIENT
  Sex: Female

DRUGS (1)
  1. INVESTIGATIONAL PRODUCT [Suspect]
     Indication: INFLAMMATORY CARCINOMA OF THE BREAST
     Dosage: 2.0/2.0 INJECTION
     Dates: start: 20121024, end: 20121203

REACTIONS (4)
  - Dyspnoea [None]
  - Malignant neoplasm progression [None]
  - Pneumonia [None]
  - Inflammatory carcinoma of the breast [None]
